FAERS Safety Report 24111065 (Version 6)
Quarter: 2024Q4

REPORT INFORMATION
  Report Type: Spontaneous
  Country: US (occurrence: US)
  Receive Date: 20240718
  Receipt Date: 20241031
  Transmission Date: 20250115
  Serious: No
  Sender: PFIZER
  Company Number: US-PFIZER INC-202400213848

PATIENT
  Age: 36 Year
  Sex: Male
  Weight: 72.57 kg

DRUGS (3)
  1. GENOTROPIN [Suspect]
     Active Substance: SOMATROPIN
     Indication: Bone disorder
     Dosage: THOUGHT THE DOSE WAS 3 MG AND IT WAS INJECTED EVERY NIGHT
  2. HYDROCORTISONE [Concomitant]
     Active Substance: HYDROCORTISONE
     Indication: Bone disorder
     Dosage: UNK
  3. PREDNISONE [Concomitant]
     Active Substance: PREDNISONE
     Indication: Bone disorder
     Dosage: UNK

REACTIONS (5)
  - Muscle tightness [Unknown]
  - Device power source issue [Unknown]
  - Drug dose omission by device [Unknown]
  - Off label use [Unknown]
  - Expired device used [Unknown]

NARRATIVE: CASE EVENT DATE: 20240710
